FAERS Safety Report 13598696 (Version 1)
Quarter: 2017Q2

REPORT INFORMATION
  Report Type: Spontaneous
  Country: CN (occurrence: CN)
  Receive Date: 20170531
  Receipt Date: 20170531
  Transmission Date: 20170830
  Serious: Yes (Other)
  Sender: FDA-Public Use
  Company Number: CN-PFIZER INC-2017234482

PATIENT
  Age: 57 Year
  Sex: Male
  Weight: 65 kg

DRUGS (7)
  1. ENDOXAN [Suspect]
     Active Substance: CYCLOPHOSPHAMIDE
     Indication: PLASMA CELL MYELOMA
     Dosage: 0.6 G, 1X/DAY
     Route: 041
     Dates: start: 20170223, end: 20170226
  2. NUOXIN [Suspect]
     Active Substance: CISPLATIN
     Indication: PLASMA CELL MYELOMA
     Dosage: 15 MG, 1X/DAY
     Route: 041
     Dates: start: 20170223, end: 20170226
  3. SODIUM CHLORIDE. [Concomitant]
     Active Substance: SODIUM CHLORIDE
     Indication: VEHICLE SOLUTION USE
     Dosage: 500 ML, 2X/DAY
     Route: 041
     Dates: start: 20170223, end: 20170226
  4. SODIUM CHLORIDE. [Concomitant]
     Active Substance: SODIUM CHLORIDE
     Dosage: 250 ML, 1X/DAY
     Route: 041
     Dates: start: 20170223, end: 20170226
  5. PHARMORUBICIN [Suspect]
     Active Substance: EPIRUBICIN
     Dosage: 20 MG, 1X/DAY
     Route: 041
     Dates: start: 20170225, end: 20170226
  6. PHARMORUBICIN [Suspect]
     Active Substance: EPIRUBICIN
     Indication: PLASMA CELL MYELOMA
     Dosage: 30 MG, 1X/DAY
     Route: 041
     Dates: start: 20170223, end: 20170224
  7. ETOPOSIDE. [Suspect]
     Active Substance: ETOPOSIDE
     Indication: PLASMA CELL MYELOMA
     Dosage: 0.06 G, 1X/DAY
     Route: 041
     Dates: start: 20170223, end: 20170226

REACTIONS (3)
  - Troponin increased [Recovering/Resolving]
  - Heart rate abnormal [None]
  - Atrial fibrillation [Recovering/Resolving]

NARRATIVE: CASE EVENT DATE: 20170228
